FAERS Safety Report 6535245-8 (Version None)
Quarter: 2010Q1

REPORT INFORMATION
  Report Type: 
  Country: None (occurrence: None)
  Receive Date: 20100113
  Receipt Date: 20100105
  Transmission Date: 20100710
  Serious: Yes (Other)
  Sender: FDA-Public Use
  Company Number: CA-ELI_LILLY_AND_COMPANY-CA201001000700

PATIENT
  Sex: Male

DRUGS (5)
  1. CIALIS [Suspect]
     Dosage: 20 MG, UNKNOWN
     Route: 065
  2. CIALIS [Suspect]
     Dosage: 20 MG, UNKNOWN
     Route: 065
  3. ASPIRIN [Concomitant]
     Dosage: 81 MG, DAILY (1/D)
     Route: 065
  4. RAMIPRIL [Concomitant]
     Dosage: 5 MG, DAILY (1/D)
     Route: 065
  5. SYNTHROID [Concomitant]
     Dosage: 0.075 MG, DAILY (1/D)
     Route: 065

REACTIONS (1)
  - DIARRHOEA HAEMORRHAGIC [None]
